FAERS Safety Report 4430743-5 (Version None)
Quarter: 2004Q3

REPORT INFORMATION
  Report Type: 
  Country: None (occurrence: None)
  Receive Date: 20040818
  Receipt Date: 20040803
  Transmission Date: 20050211
  Serious: Yes (Hospitalization)
  Sender: FDA-Public Use
  Company Number: FR-2004-030165

PATIENT
  Age: 64 Year
  Sex: Female

DRUGS (4)
  1. SOTALOL HCL [Suspect]
     Indication: ARRHYTHMIA
     Dosage: 80 MG/D, ORAL
     Route: 048
     Dates: start: 20030901
  2. COUMADIN [Suspect]
     Dosage: 1 TAB DAY 1+2, 1+1/2 TAB DAY 3, ORAL
     Route: 048
     Dates: start: 20040116, end: 20040227
  3. COUMADIN [Suspect]
     Dosage: 1 TAB DAY 1+2, 1+1/2 TAB DAY 3, ORAL
     Route: 048
     Dates: start: 20040327
  4. FLECAINIDE ACETATE [Concomitant]

REACTIONS (4)
  - DIVERTICULITIS [None]
  - INTERNATIONAL NORMALISED RATIO DECREASED [None]
  - POST PROCEDURAL HAEMORRHAGE [None]
  - SIGMOIDITIS [None]
